FAERS Safety Report 24882685 (Version 1)
Quarter: 2025Q1

REPORT INFORMATION
  Report Type: Spontaneous
  Country: US (occurrence: US)
  Receive Date: 20250124
  Receipt Date: 20250124
  Transmission Date: 20250409
  Serious: Yes (Hospitalization)
  Sender: ROCHE
  Company Number: US-ROCHE-10000188450

PATIENT
  Age: 50 Year
  Sex: Female
  Weight: 69 kg

DRUGS (14)
  1. RITUXIMAB [Suspect]
     Active Substance: RITUXIMAB
     Indication: Immunosuppression
     Dosage: FREQUENCY: ONCE
     Route: 042
     Dates: start: 20240919, end: 20240919
  2. RITUXIMAB [Suspect]
     Active Substance: RITUXIMAB
     Dosage: FREQUENCY: ONCE
     Route: 042
     Dates: start: 20241004, end: 20241004
  3. DEXAMETHASONE [Suspect]
     Active Substance: DEXAMETHASONE
     Indication: Immunosuppression
     Route: 048
     Dates: start: 20241009, end: 20241106
  4. DEXAMETHASONE [Suspect]
     Active Substance: DEXAMETHASONE
     Route: 048
     Dates: start: 20241107, end: 20241113
  5. DEXAMETHASONE [Suspect]
     Active Substance: DEXAMETHASONE
     Route: 048
     Dates: start: 20241114, end: 20241120
  6. DEXAMETHASONE [Suspect]
     Active Substance: DEXAMETHASONE
     Route: 048
     Dates: start: 20241121, end: 20241127
  7. SIROLIMUS [Suspect]
     Active Substance: SIROLIMUS
     Indication: Immunosuppression
     Route: 048
     Dates: start: 20241005, end: 20241017
  8. SIROLIMUS [Suspect]
     Active Substance: SIROLIMUS
     Route: 048
     Dates: start: 20241018, end: 20241105
  9. CITALOPRAM [Concomitant]
     Active Substance: CITALOPRAM
     Dates: start: 20210625
  10. PANTOPRAZOLE [Concomitant]
     Active Substance: PANTOPRAZOLE
     Dates: start: 2016
  11. CETIRIZINE [Concomitant]
     Active Substance: CETIRIZINE HYDROCHLORIDE
     Dates: start: 1980
  12. HYDROXYZINE [Concomitant]
     Active Substance: HYDROXYZINE HYDROCHLORIDE
     Dates: start: 2003
  13. DIAZEPAM [Concomitant]
     Active Substance: DIAZEPAM
     Dates: start: 20240917
  14. SENNOSIDES [Concomitant]
     Active Substance: SENNOSIDES
     Dates: start: 20241013, end: 20241215

REACTIONS (1)
  - Soft tissue infection [Recovered/Resolved]

NARRATIVE: CASE EVENT DATE: 20241108
